FAERS Safety Report 5923018-6 (Version None)
Quarter: 2008Q4

REPORT INFORMATION
  Report Type: 
  Country: None (occurrence: None)
  Receive Date: 20081018
  Receipt Date: 20081007
  Transmission Date: 20090506
  Serious: Yes (Other)
  Sender: FDA-Public Use
  Company Number: IL-PFIZER INC-2008076678

PATIENT
  Age: 45 Year
  Sex: Female

DRUGS (6)
  1. CHAMPIX [Suspect]
     Dates: start: 20080401, end: 20080501
  2. ANASTROZOLE [Concomitant]
  3. SIMOVIL [Concomitant]
  4. ENALAPRIL MALEATE [Concomitant]
  5. NORMITEN [Concomitant]
  6. CITALOPRAM HYDROBROMIDE [Concomitant]

REACTIONS (2)
  - PARANOIA [None]
  - SUICIDAL IDEATION [None]
